FAERS Safety Report 24187157 (Version 1)
Quarter: 2024Q3

REPORT INFORMATION
  Report Type: Report from Study
  Country: CA (occurrence: CA)
  Receive Date: 20240808
  Receipt Date: 20240808
  Transmission Date: 20241017
  Serious: Yes (Other)
  Sender: JOHNSON AND JOHNSON
  Company Number: CA-JNJFOC-20240408395

PATIENT
  Age: 81 Year
  Sex: Male

DRUGS (2)
  1. TREMFYA [Suspect]
     Active Substance: GUSELKUMAB
     Indication: Psoriasis
     Route: 058
     Dates: start: 20200402
  2. TREMFYA [Suspect]
     Active Substance: GUSELKUMAB

REACTIONS (5)
  - Pneumonia [Recovered/Resolved]
  - Thrombosis [Unknown]
  - Psoriasis [Unknown]
  - Hyperhidrosis [Unknown]
  - Product dose omission issue [Unknown]

NARRATIVE: CASE EVENT DATE: 20240720
